FAERS Safety Report 5417256-9 (Version None)
Quarter: 2007Q3

REPORT INFORMATION
  Report Type: 
  Country: None (occurrence: None)
  Receive Date: 20070816
  Receipt Date: 20070808
  Transmission Date: 20080115
  Serious: Yes (Hospitalization, Other)
  Sender: FDA-Public Use
  Company Number: US-SHR-US-2007-029554

PATIENT
  Age: 52 Year
  Sex: Female
  Weight: 77 kg

DRUGS (10)
  1. CLIMARA [Suspect]
     Dosage: .075 MG/D, CONT
     Route: 062
     Dates: start: 20070610
  2. HYDROCODONE BITARTRATE [Concomitant]
     Indication: NECK PAIN
     Dates: start: 20070610
  3. COREG [Concomitant]
  4. SPIRIVA ^PFIZER^ [Concomitant]
  5. ADVAIR DISKUS 100/50 [Concomitant]
  6. DIGITOXIN TAB [Concomitant]
  7. ENALAPRIL [Concomitant]
  8. SPIRONOLACTONE [Concomitant]
  9. CYMBALTA [Concomitant]
  10. VYTORIN [Concomitant]

REACTIONS (9)
  - CONVULSION [None]
  - DYSPNOEA [None]
  - FEELING ABNORMAL [None]
  - HEADACHE [None]
  - NAUSEA [None]
  - NECK PAIN [None]
  - OVERDOSE [None]
  - PRURITUS [None]
  - VISUAL FIELD DEFECT [None]
